FAERS Safety Report 12600485 (Version 2)
Quarter: 2016Q4

REPORT INFORMATION
  Report Type: Other
  Country: FR (occurrence: FR)
  Receive Date: 20160727
  Receipt Date: 20161024
  Transmission Date: 20170207
  Serious: Yes (Hospitalization, Other)
  Sender: FDA-Public Use
  Company Number: FR-ALEXION PHARMACEUTICALS INC-A201605386

PATIENT
  Age: 15 Year
  Sex: Male

DRUGS (8)
  1. ATARAX [Suspect]
     Active Substance: HYDROXYZINE\HYDROXYZINE HYDROCHLORIDE
     Indication: SLEEP DISORDER
     Dosage: 25 MG, UNK
     Route: 048
     Dates: start: 20160613, end: 20160627
  2. ANTILYMPHOCYTE SERUM [Concomitant]
     Active Substance: THYMOCYTE IMMUNE GLOBULIN NOS
     Indication: PRODUCT USED FOR UNKNOWN INDICATION
     Route: 065
  3. SOLIRIS [Suspect]
     Active Substance: ECULIZUMAB
     Indication: PAROXYSMAL NOCTURNAL HAEMOGLOBINURIA
     Dosage: 900 MG, Q2W
     Route: 042
     Dates: start: 20160215, end: 20160620
  4. SOLIRIS [Suspect]
     Active Substance: ECULIZUMAB
     Indication: OFF LABEL USE
  5. ORACILLINE                         /00001801/ [Suspect]
     Active Substance: PENICILLIN V
     Indication: PROPHYLAXIS
     Dosage: 1000000, BID
     Route: 048
     Dates: start: 201602, end: 20160628
  6. TAZOCILLINE [Suspect]
     Active Substance: PIPERACILLIN SODIUM\TAZOBACTAM SODIUM
     Indication: BACTERIAL SEPSIS
     Dosage: 16 G, QD (4G/500 MG 4 DF)
     Route: 042
     Dates: start: 20160618, end: 20160624
  7. CICLOSPORIN [Concomitant]
     Active Substance: CYCLOSPORINE
     Indication: PRODUCT USED FOR UNKNOWN INDICATION
     Route: 065
  8. BACTRIM [Suspect]
     Active Substance: SULFAMETHOXAZOLE\TRIMETHOPRIM
     Indication: PROPHYLAXIS
     Dosage: 800 MG, TID
     Route: 048
     Dates: start: 20160613, end: 20160629

REACTIONS (10)
  - Rash macular [Unknown]
  - Off label use [Recovered/Resolved]
  - Pyrexia [Recovered/Resolved]
  - Rash erythematous [Recovering/Resolving]
  - Inflammation [Recovered/Resolved]
  - Drug hypersensitivity [Unknown]
  - Photosensitivity reaction [Recovering/Resolving]
  - Blood creatinine increased [Unknown]
  - Hypotension [Recovered/Resolved]
  - Pseudomonal sepsis [Unknown]

NARRATIVE: CASE EVENT DATE: 20160215
